FAERS Safety Report 6215009-5 (Version None)
Quarter: 2009Q2

REPORT INFORMATION
  Report Type: 
  Country: None (occurrence: None)
  Receive Date: 20090604
  Receipt Date: 20080804
  Transmission Date: 20091009
  Serious: No
  Sender: FDA-Public Use
  Company Number: US-ASTRAZENECA-2008UW15075

PATIENT
  Age: 1 Year
  Sex: Male
  Weight: 9.1 kg

DRUGS (3)
  1. PRILOSEC [Suspect]
     Indication: GASTROOESOPHAGEAL REFLUX DISEASE
     Dosage: 10MG
     Route: 048
  2. PRILOSEC [Suspect]
     Dosage: COMPOUNDED SUSPENSION 11 MG BID
     Route: 048
  3. PRILOSEC [Suspect]
     Dosage: 12 MG BID GIVEN AS ONE 10 MG CAPSULE + 2MG/1 ML OF COMPOUNDED SUSPENSION BID
     Route: 048

REACTIONS (2)
  - DRUG INEFFECTIVE [None]
  - RESTLESSNESS [None]
